FAERS Safety Report 7266265-6 (Version None)
Quarter: 2011Q1

REPORT INFORMATION
  Report Type: 
  Country: None (occurrence: None)
  Receive Date: 20110120
  Receipt Date: 20110105
  Transmission Date: 20110831
  Serious: Yes (Other)
  Sender: FDA-Public Use
  Company Number: 2011AP000012

PATIENT
  Age: 28 Year
  Sex: Male

DRUGS (3)
  1. TACROLIMUS [Concomitant]
  2. MYCOPHENOLATE MOFETIL [Suspect]
     Indication: PRODUCT USED FOR UNKNOWN INDICATION
  3. ANTIPSYCHOTICS [Concomitant]

REACTIONS (3)
  - EXTRAPYRAMIDAL DISORDER [None]
  - ABNORMAL BEHAVIOUR [None]
  - HALLUCINATION, AUDITORY [None]
